FAERS Safety Report 7136393-4 (Version None)
Quarter: 2010Q4

REPORT INFORMATION
  Report Type: 
  Country: None (occurrence: None)
  Receive Date: 20101206
  Receipt Date: 20101129
  Transmission Date: 20110411
  Serious: No
  Sender: FDA-Public Use
  Company Number: US-BIOGENIDEC-2010BI042077

PATIENT
  Sex: Female

DRUGS (1)
  1. TYSABRI [Suspect]
     Indication: MULTIPLE SCLEROSIS
     Route: 042
     Dates: start: 20081007

REACTIONS (7)
  - ASTHENIA [None]
  - BALANCE DISORDER [None]
  - FALL [None]
  - HEAD INJURY [None]
  - NEUROPATHY PERIPHERAL [None]
  - PERIORBITAL HAEMATOMA [None]
  - UPPER LIMB FRACTURE [None]
